FAERS Safety Report 6718333-2 (Version None)
Quarter: 2010Q2

REPORT INFORMATION
  Report Type: 
  Country: None (occurrence: None)
  Receive Date: 20100505
  Receipt Date: 20100422
  Transmission Date: 20101027
  Serious: Yes (Other)
  Sender: FDA-Public Use
  Company Number: 229-20484-09121756

PATIENT
  Sex: Male

DRUGS (7)
  1. INNOHEP [Suspect]
     Indication: DRUG EXPOSURE DURING PREGNANCY
     Dosage: TRANSPLACENTAL
     Route: 064
     Dates: start: 20030803, end: 20031010
  2. METHADONE HCL [Concomitant]
  3. FLUCLOXACILLIN (FLUCOXACILLIN) [Concomitant]
  4. CALVAPEN (PHENOXYMETHYLPENICILLIN, CALCIUM) [Concomitant]
  5. ACETAMINOPHEN [Concomitant]
  6. AMITRIPTYLINE HCL [Concomitant]
  7. DIAZEPAM [Concomitant]

REACTIONS (1)
  - DRUG EXPOSURE DURING PREGNANCY [None]
